APPROVED DRUG PRODUCT: SINUVA
Active Ingredient: MOMETASONE FUROATE
Strength: 1.35MG
Dosage Form/Route: IMPLANT;IMPLANTATION
Application: N209310 | Product #001
Applicant: INTERSECT ENT INC
Approved: Dec 8, 2017 | RLD: Yes | RS: No | Type: RX

PATENTS:
Patent 8025635 | Expires: Jun 12, 2027
Patent 10232152 | Expires: Nov 24, 2034
Patent 10357640 | Expires: Oct 3, 2031
Patent 9585681 | Expires: Apr 4, 2026
Patent 7544192 | Expires: Nov 29, 2026
Patent 10406332 | Expires: Mar 13, 2034
Patent 8763222 | Expires: Feb 8, 2032